FAERS Safety Report 9459245 (Version 1)
Quarter: 2013Q3

REPORT INFORMATION
  Report Type: Spontaneous
  Country: AU (occurrence: AU)
  Receive Date: 20130814
  Receipt Date: 20130814
  Transmission Date: 20140515
  Serious: Yes (Hospitalization, Other)
  Sender: FDA-Public Use
  Company Number: AU-ROCHE-1260036

PATIENT
  Sex: Female

DRUGS (15)
  1. HERCEPTIN [Suspect]
     Indication: BREAST CANCER METASTATIC
     Dosage: MONOTHERAPY
     Route: 065
     Dates: start: 200307, end: 200311
  2. HERCEPTIN [Suspect]
     Dosage: MONOTHERAPY.
     Route: 065
     Dates: end: 200402
  3. HERCEPTIN [Suspect]
     Dosage: MONOTHERAPY
     Route: 065
     Dates: start: 20070913, end: 20071227
  4. HERCEPTIN [Suspect]
     Dosage: MONOTHERAPY
     Route: 065
     Dates: start: 200801, end: 201109
  5. HERCEPTIN [Suspect]
     Dosage: MONOTHERAPY
     Route: 065
     Dates: start: 201209, end: 201307
  6. MABTHERA [Suspect]
     Indication: NON-HODGKIN^S LYMPHOMA
     Dosage: 4 CYCLES
     Route: 065
     Dates: start: 2004
  7. CAPECITABINE [Suspect]
     Indication: METASTASES TO LUNG
     Route: 065
     Dates: start: 201109
  8. TAMOXIFEN [Concomitant]
     Indication: BREAST CANCER
     Route: 065
     Dates: end: 20041129
  9. TAXOTERE [Concomitant]
     Indication: BREAST CANCER METASTATIC
     Route: 065
     Dates: start: 200307, end: 200311
  10. TAXOTERE [Concomitant]
     Route: 065
     Dates: start: 20070913, end: 20071227
  11. LAPATINIB [Concomitant]
     Indication: METASTASES TO LUNG
     Route: 065
     Dates: start: 201109
  12. EXEMESTANE [Concomitant]
  13. VINORELBINE [Concomitant]
  14. CARBOPLATIN [Concomitant]
  15. LETROZOLE [Concomitant]
     Indication: BREAST CANCER

REACTIONS (4)
  - Disease progression [Unknown]
  - Ejection fraction decreased [Unknown]
  - Disease recurrence [Unknown]
  - Non-Hodgkin^s lymphoma [Unknown]
